FAERS Safety Report 5454710-8 (Version None)
Quarter: 2007Q3

REPORT INFORMATION
  Report Type: 
  Country: None (occurrence: None)
  Receive Date: 20070917
  Receipt Date: 20061011
  Transmission Date: 20080115
  Serious: No
  Sender: FDA-Public Use
  Company Number: US-ASTRAZENECA-2006UW19734

PATIENT
  Age: 55 Year
  Sex: Female
  Weight: 80.7 kg

DRUGS (5)
  1. SEROQUEL [Suspect]
     Indication: BIPOLAR I DISORDER
     Route: 048
     Dates: start: 20040101
  2. KLONOPIN [Concomitant]
  3. THYROID TAB [Concomitant]
  4. LAMICTAL [Concomitant]
  5. ZELNORM [Concomitant]

REACTIONS (4)
  - CONSTIPATION [None]
  - FOOD CRAVING [None]
  - STRESS [None]
  - WEIGHT INCREASED [None]
